FAERS Safety Report 8536129-6 (Version None)
Quarter: 2012Q3

REPORT INFORMATION
  Report Type: 
  Country: None (occurrence: None)
  Receive Date: 20120725
  Receipt Date: 20120717
  Transmission Date: 20120928
  Serious: Yes (Other)
  Sender: FDA-Public Use
  Company Number: JP-ASTELLAS-2012JP006241

PATIENT
  Age: 66 Year
  Sex: Female

DRUGS (14)
  1. VESICARE [Suspect]
     Indication: HYPERTONIC BLADDER
     Dosage: 5 MG, UNKNOWN/D
     Route: 048
  2. FOLIC ACID [Suspect]
     Dosage: 5 MG, WEEKLY
     Route: 048
  3. DIOVAN [Suspect]
     Dosage: 80 MG, UID/QD
     Route: 048
  4. LANSOPRAZOLE [Suspect]
     Dosage: 30 MG, UNKNOWN/D
     Route: 048
  5. MAGMITT [Suspect]
     Dosage: 1000 MG, UNKNOWN/D
     Route: 048
  6. ALENDRONATE SODIUM [Suspect]
     Dosage: 35 MG, WEEKLY
     Route: 048
  7. RHEUMATREX [Suspect]
     Route: 048
  8. MUCOSTA [Suspect]
     Dosage: 300 MG, UNKNOWN/D
     Route: 048
  9. AMLODIPINE [Suspect]
     Dosage: 5 MG, UNKNOWN/D
     Route: 048
  10. PURSENNID                          /00571902/ [Suspect]
     Dosage: 36 MG, UNKNOWN/D
     Route: 048
  11. WARFARIN SODIUM [Suspect]
     Dosage: 2 MG, UNKNOWN/D
     Route: 048
  12. VESICARE [Suspect]
     Route: 048
  13. ONEALFA [Suspect]
     Dosage: 0.5 UG, UNKNOWN/D
     Route: 048
  14. LOXONIN [Suspect]
     Dosage: 180 MG, UNKNOWN/D
     Route: 048

REACTIONS (1)
  - ANOSMIA [None]
